FAERS Safety Report 6814632-4 (Version None)
Quarter: 2010Q3

REPORT INFORMATION
  Report Type: 
  Country: None (occurrence: None)
  Receive Date: 20100702
  Receipt Date: 20100625
  Transmission Date: 20110219
  Serious: Yes (Other)
  Sender: FDA-Public Use
  Company Number: GB-PFIZER INC-2010060196

PATIENT
  Age: 57 Year
  Sex: Male
  Weight: 72 kg

DRUGS (3)
  1. CHAMPIX [Suspect]
     Indication: SMOKING CESSATION THERAPY
     Dosage: UNK
     Route: 048
     Dates: start: 20070807, end: 20071115
  2. COMBIVENT [Concomitant]
     Dosage: UNK
     Route: 055
  3. SYMBICORT [Concomitant]
     Dosage: UNK
     Route: 055

REACTIONS (5)
  - ANXIETY [None]
  - DEPRESSED MOOD [None]
  - HALLUCINATION [None]
  - MALAISE [None]
  - TACHYPHRENIA [None]
